FAERS Safety Report 24263240 (Version 1)
Quarter: 2024Q3

REPORT INFORMATION
  Report Type: Report from Study
  Country: US (occurrence: US)
  Receive Date: 20240829
  Receipt Date: 20240829
  Transmission Date: 20241017
  Serious: No
  Sender: ALEXION PHARMACEUTICALS
  Company Number: US-ALXN-202408USA001593US

PATIENT

DRUGS (1)
  1. STRENSIQ [Suspect]
     Active Substance: ASFOTASE ALFA
     Indication: Product used for unknown indication
     Dosage: UNK
     Route: 065

REACTIONS (14)
  - Anaemia [Unknown]
  - Anxiety [Unknown]
  - Stress [Unknown]
  - Arthralgia [Unknown]
  - Arthritis [Unknown]
  - Back pain [Unknown]
  - Gastrooesophageal reflux disease [Unknown]
  - Headache [Unknown]
  - Fibromyalgia [Unknown]
  - Fatigue [Unknown]
  - Myalgia [Unknown]
  - Lipase increased [Unknown]
  - Enzyme abnormality [Unknown]
  - Ulcer [Unknown]

NARRATIVE: CASE EVENT DATE: 20240112
